FAERS Safety Report 7825569-6 (Version None)
Quarter: 2011Q4

REPORT INFORMATION
  Report Type: 
  Country: None (occurrence: None)
  Receive Date: 20111019
  Receipt Date: 20111009
  Transmission Date: 20120403
  Serious: Yes (Other)
  Sender: FDA-Public Use
  Company Number: US-BAYER-2011-097071

PATIENT
  Age: 19 Year
  Sex: Female

DRUGS (2)
  1. OTHER ANALGESICS AND ANTIPYRETICS [Concomitant]
  2. SAFYRAL [Suspect]

REACTIONS (2)
  - PELVIC PAIN [None]
  - VAGINAL HAEMORRHAGE [None]
